FAERS Safety Report 16347070 (Version 2)
Quarter: 2020Q2

REPORT INFORMATION
  Report Type: Spontaneous
  Country: US (occurrence: US)
  Receive Date: 20190523
  Receipt Date: 20200604
  Transmission Date: 20200713
  Serious: No
  Sender: FDA-Public Use
  Company Number: US-TARO-2019TAR00055

PATIENT
  Age: 87 Year
  Sex: Female
  Weight: 63.49 kg

DRUGS (3)
  1. ELIQUIS [Concomitant]
     Active Substance: APIXABAN
  2. LEVOTHYROXINE. [Concomitant]
     Active Substance: LEVOTHYROXINE
  3. CICLOPIROX OLAMINE CREAM USP 0.77% [Suspect]
     Active Substance: CICLOPIROX OLAMINE
     Indication: DERMATITIS CONTACT
     Dosage: UNK
     Route: 061
     Dates: start: 20190124, end: 20190124

REACTIONS (5)
  - Application site pain [Recovered/Resolved]
  - Off label use [Recovered/Resolved]
  - Pruritus [Recovered/Resolved]
  - Application site pruritus [Recovered/Resolved]
  - Product lot number issue [Recovered/Resolved]

NARRATIVE: CASE EVENT DATE: 20190124
